FAERS Safety Report 8829804 (Version 1)
Quarter: 2012Q4

REPORT INFORMATION
  Report Type: 
  Country: US (occurrence: US)
  Receive Date: 20121008
  Receipt Date: 20121008
  Transmission Date: 20130627
  Serious: No
  Sender: FDA-Public Use
  Company Number: US-ROCHE-GNE235020

PATIENT
  Sex: Male
  Weight: 52.21 kg

DRUGS (2)
  1. NUTROPIN [Suspect]
     Indication: DWARFISM
     Dosage: 2.0 mg, QPM
     Route: 058
     Dates: start: 20060424
  2. PREVACID [Concomitant]
     Indication: GASTRITIS
     Dosage: 30 mg, QAM
     Route: 048

REACTIONS (2)
  - Injection site haemorrhage [Unknown]
  - Injection site pain [Unknown]
